FAERS Safety Report 5907481-2 (Version None)
Quarter: 2008Q4

REPORT INFORMATION
  Report Type: 
  Country: None (occurrence: None)
  Receive Date: 20081003
  Receipt Date: 20080926
  Transmission Date: 20090506
  Serious: Yes (Other)
  Sender: FDA-Public Use
  Company Number: B0539900A

PATIENT
  Age: 61 Year
  Sex: Female
  Weight: 45 kg

DRUGS (2)
  1. REQUIP [Suspect]
     Indication: PARKINSON'S DISEASE
     Dosage: 2MG PER DAY
     Route: 048
     Dates: start: 20080901, end: 20080915
  2. CARBIDOPA AND LEVODOPA [Concomitant]
     Route: 048
     Dates: start: 19890101

REACTIONS (1)
  - DELIRIUM [None]
